FAERS Safety Report 23899387 (Version 1)
Quarter: 2024Q2

REPORT INFORMATION
  Report Type: Spontaneous
  Country: US (occurrence: US)
  Receive Date: 20240526
  Receipt Date: 20240526
  Transmission Date: 20240716
  Serious: No
  Sender: FDA-Public Use
  Company Number: US-009507513-2405USA003635

PATIENT
  Age: 54 Year
  Sex: Male

DRUGS (5)
  1. JANUVIA [Suspect]
     Active Substance: SITAGLIPTIN PHOSPHATE
     Indication: Diabetes mellitus
     Dosage: ONE PILL EVERY COUPLE OF DAYS
     Route: 048
     Dates: start: 202311
  2. JANUVIA [Suspect]
     Active Substance: SITAGLIPTIN PHOSPHATE
     Dosage: 25MG/ONCE DAILY
     Route: 048
     Dates: start: 202402
  3. ANASTROZOLE [Concomitant]
     Active Substance: ANASTROZOLE
  4. ROSUVASTATIN [Concomitant]
     Active Substance: ROSUVASTATIN
  5. LISINOPRIL [Concomitant]
     Active Substance: LISINOPRIL

REACTIONS (7)
  - Drug ineffective [Unknown]
  - Weight decreased [Recovered/Resolved]
  - Decreased appetite [Recovered/Resolved]
  - Blood glucose increased [Unknown]
  - Somnolence [Unknown]
  - Therapeutic response changed [Unknown]
  - Intentional product misuse [Unknown]

NARRATIVE: CASE EVENT DATE: 20231101
